FAERS Safety Report 7253490-3 (Version None)
Quarter: 2011Q1

REPORT INFORMATION
  Report Type: 
  Country: None (occurrence: None)
  Receive Date: 20110129
  Receipt Date: 20100312
  Transmission Date: 20110831
  Serious: No
  Sender: FDA-Public Use
  Company Number: US-ABBOTT-10P-163-0632397-00

PATIENT
  Age: 23 Year
  Sex: Male

DRUGS (2)
  1. HUMIRA [Suspect]
     Indication: PSORIATIC ARTHROPATHY
     Route: 058
     Dates: start: 20100101, end: 20100201
  2. HUMIRA [Suspect]
     Indication: PSORIASIS

REACTIONS (2)
  - LIVER FUNCTION TEST ABNORMAL [None]
  - ABDOMINAL PAIN UPPER [None]
